FAERS Safety Report 5909831-X (Version None)
Quarter: 2008Q4

REPORT INFORMATION
  Report Type: 
  Country: None (occurrence: None)
  Receive Date: 20081007
  Receipt Date: 20080930
  Transmission Date: 20090506
  Serious: Yes (Hospitalization)
  Sender: FDA-Public Use
  Company Number: FR-BRISTOL-MYERS SQUIBB COMPANY-14359202

PATIENT
  Age: 62 Year
  Sex: Male

DRUGS (1)
  1. GLUCOVANCE [Suspect]
     Indication: TYPE 2 DIABETES MELLITUS
     Dosage: STRENGTH 2.5MG/500 MG FOR 3-4 YEARS. STOPPED DURING HOSP. AND RE-INTRODUCED, AND AGAIN STOPPED.

REACTIONS (2)
  - MALAISE [None]
  - TACHYCARDIA [None]
